FAERS Safety Report 18400517 (Version 1)
Quarter: 2020Q4

REPORT INFORMATION
  Report Type: Spontaneous
  Country: CH (occurrence: CH)
  Receive Date: 20201019
  Receipt Date: 20201019
  Transmission Date: 20210114
  Serious: Yes (Hospitalization)
  Sender: FDA-Public Use
  Company Number: CH-PFIZER INC-2020400278

PATIENT
  Age: 78 Year
  Sex: Male

DRUGS (9)
  1. PREGABALIN PFIZER [Suspect]
     Active Substance: PREGABALIN
     Indication: RADICULOPATHY
     Dosage: 50 MG
     Route: 048
     Dates: start: 20200913, end: 20200914
  2. TELMISARTAN MEPHA [Concomitant]
     Dosage: 120 MG, 1X/DAY
     Route: 048
  3. LERCANIDIPIN SANDOZ [Concomitant]
     Active Substance: LERCANIDIPINE HYDROCHLORIDE
     Dosage: 10 MG, 1X/DAY
     Route: 048
  4. PRAVASTATIN SANDOZ [Concomitant]
     Active Substance: PRAVASTATIN
     Dosage: 20 MG, 1X/DAY
     Route: 048
  5. PREGABALIN PFIZER [Suspect]
     Active Substance: PREGABALIN
     Dosage: 25 MG
     Route: 048
     Dates: start: 20200915, end: 20200915
  6. ATENOLOL MEPHA [Concomitant]
     Dosage: 25 MG, 2X/DAY
     Route: 048
  7. LANTUS [Concomitant]
     Active Substance: INSULIN GLARGINE
     Dosage: 10 IU, 1X/DAY
     Route: 058
  8. ASPIRIN CARDIO [Concomitant]
     Active Substance: ASPIRIN
     Dosage: 100 MG, 1X/DAY
     Route: 048
  9. JANUMET [Concomitant]
     Active Substance: METFORMIN HYDROCHLORIDE\SITAGLIPTIN PHOSPHATE
     Dosage: 1 DF, 2X/DAY (JANUMET 50/1000 MG)
     Route: 048

REACTIONS (1)
  - Neutropenia [Recovering/Resolving]

NARRATIVE: CASE EVENT DATE: 20200915
